FAERS Safety Report 6748209-6 (Version None)
Quarter: 2010Q2

REPORT INFORMATION
  Report Type: 
  Country: None (occurrence: None)
  Receive Date: 20100601
  Receipt Date: 20100517
  Transmission Date: 20101027
  Serious: Yes (Other)
  Sender: FDA-Public Use
  Company Number: US-ASTRAZENECA-2010SE23624

PATIENT
  Age: 20695 Day
  Sex: Male

DRUGS (3)
  1. SEROQUEL [Suspect]
     Dosage: 50-200MG
     Route: 048
     Dates: start: 20080818
  2. TRAZODONE HCL [Concomitant]
     Dates: start: 20090417
  3. CYMBALTA [Concomitant]
     Dates: start: 20071008

REACTIONS (1)
  - NEUROPATHY PERIPHERAL [None]
